FAERS Safety Report 6105263-2 (Version None)
Quarter: 2009Q1

REPORT INFORMATION
  Report Type: 
  Country: None (occurrence: None)
  Receive Date: 20090303
  Receipt Date: 20090218
  Transmission Date: 20090719
  Serious: Yes (Other)
  Sender: FDA-Public Use
  Company Number: 2008AP003450

PATIENT
  Age: 39 Year
  Sex: Male
  Weight: 127.0072 kg

DRUGS (3)
  1. DIVALPROEX SODIUM [Suspect]
     Indication: CONVULSION
     Dosage: 3000 MG QD; 3500 MG QD
  2. VALPROATE SODIUM [Concomitant]
  3. LEVETIRACETAM [Concomitant]

REACTIONS (6)
  - ANTICONVULSANT DRUG LEVEL DECREASED [None]
  - DRUG INEFFECTIVE [None]
  - FALL [None]
  - HEAD INJURY [None]
  - JOINT INJURY [None]
  - THERAPEUTIC RESPONSE UNEXPECTED WITH DRUG SUBSTITUTION [None]
